FAERS Safety Report 9205286 (Version 5)
Quarter: 2013Q2

REPORT INFORMATION
  Report Type: Spontaneous
  Country: US (occurrence: US)
  Receive Date: 20130402
  Receipt Date: 20130605
  Transmission Date: 20140414
  Serious: Yes (Death)
  Sender: FDA-Public Use
  Company Number: US-PFIZER INC-2013102899

PATIENT
  Age: 53 Year
  Sex: Female
  Weight: 61 kg

DRUGS (1)
  1. PROTONIX [Suspect]
     Indication: HYPERCHLORHYDRIA
     Dosage: UNKNOWN DOSE; ONCE DAILY (1X/DAY)
     Route: 048
     Dates: start: 2010

REACTIONS (2)
  - Organ failure [Fatal]
  - Liver disorder [Fatal]
